FAERS Safety Report 6488249-8 (Version None)
Quarter: 2009Q4

REPORT INFORMATION
  Report Type: 
  Country: None (occurrence: None)
  Receive Date: 20091123
  Receipt Date: 20091015
  Transmission Date: 20100525
  Serious: No
  Sender: FDA-Public Use
  Company Number: 8053324

PATIENT
  Age: 60 Year
  Sex: Female
  Weight: 56.6 kg

DRUGS (27)
  1. CIMZIA [Suspect]
     Indication: CROHN'S DISEASE
     Dosage: 400 MG /M SC
     Route: 058
     Dates: start: 20090507
  2. ABILIFY [Concomitant]
  3. ASPIRIN [Concomitant]
  4. ATIVAN [Concomitant]
  5. FERROUS SULFATE TAB [Concomitant]
  6. FOSAMAX [Concomitant]
  7. GLUCOPHAGE [Concomitant]
  8. HUMALOG [Concomitant]
  9. KLOR-CON [Concomitant]
  10. LANTUS [Concomitant]
  11. LASIX [Concomitant]
  12. LOPID [Concomitant]
  13. OSCAL [Concomitant]
  14. SYNTHROID [Concomitant]
  15. TRICOR [Concomitant]
  16. LEVOTHYROXINE SODIUM [Concomitant]
  17. OXCARBAZEPINE [Concomitant]
  18. ZINC SULFATE [Concomitant]
  19. MIRTAZAPINE [Concomitant]
  20. ACTONEL [Concomitant]
  21. FUROSEMIDE [Concomitant]
  22. L-CIUM CARB [Concomitant]
  23. METFORMIN HCL [Concomitant]
  24. GEMFIBROZIL [Concomitant]
  25. B-12 CYANOCOBALAM [Concomitant]
  26. VITAMIN D [Concomitant]
  27. ZOCOR [Concomitant]

REACTIONS (1)
  - CONTUSION [None]
